FAERS Safety Report 22069775 (Version 1)
Quarter: 2023Q1

REPORT INFORMATION
  Report Type: Spontaneous
  Country: NO (occurrence: NO)
  Receive Date: 20230307
  Receipt Date: 20230307
  Transmission Date: 20230418
  Serious: Yes (Death, Hospitalization)
  Sender: FDA-Public Use
  Company Number: NO-PFIZER INC-PV202300018759

PATIENT
  Age: 85 Year
  Sex: Female

DRUGS (7)
  1. METHOTREXATE [Suspect]
     Active Substance: METHOTREXATE
     Indication: Rheumatoid arthritis
     Dosage: 1 DF, 1X/DAY
     Route: 048
     Dates: start: 20220720, end: 20220725
  2. ASPIRIN\MAGNESIUM OXIDE [Concomitant]
     Active Substance: ASPIRIN\MAGNESIUM OXIDE
     Dosage: 75 MG, 1X/DAY
  3. BETULAC [Concomitant]
  4. FOLIC ACID [Concomitant]
     Active Substance: FOLIC ACID
     Dosage: 1 MG, 1X/DAY
  5. KALCIPOS VITAMIN D [Concomitant]
     Dosage: 1 DF, 1X/DAY
  6. PLAQUENIL [Concomitant]
     Active Substance: HYDROXYCHLOROQUINE SULFATE
     Dosage: 200 MG, 1X/DAY
  7. PANTOPRAZOLE SODIUM [Concomitant]
     Active Substance: PANTOPRAZOLE SODIUM
     Dosage: 20 MG, 1X/DAY

REACTIONS (13)
  - Death [Fatal]
  - Accidental overdose [Fatal]
  - Inappropriate schedule of product administration [Fatal]
  - Pyrexia [Unknown]
  - Vomiting [Unknown]
  - Wound [Unknown]
  - Oral mucosal blistering [Unknown]
  - Contusion [Unknown]
  - Pain [Unknown]
  - Speech disorder [Unknown]
  - Feeding disorder [Unknown]
  - Weight decreased [Unknown]
  - General physical health deterioration [Unknown]

NARRATIVE: CASE EVENT DATE: 20220720
